FAERS Safety Report 10226033 (Version 2)
Quarter: 2014Q4

REPORT INFORMATION
  Report Type: Spontaneous
  Country: US (occurrence: US)
  Receive Date: 20140609
  Receipt Date: 20141205
  Transmission Date: 20150528
  Serious: No
  Sender: FDA-Public Use
  Company Number: US-ASTELLAS-2014US003159

PATIENT
  Sex: Male

DRUGS (1)
  1. XTANDI [Suspect]
     Active Substance: ENZALUTAMIDE
     Indication: PROSTATE CANCER
     Route: 048
     Dates: start: 20140320

REACTIONS (8)
  - Pulmonary congestion [Recovered/Resolved]
  - Nasal congestion [Unknown]
  - Rhinitis allergic [Unknown]
  - Seasonal allergy [Unknown]
  - Swelling face [Unknown]
  - Eye pruritus [Unknown]
  - Pruritus [Unknown]
  - Eye swelling [Unknown]
